FAERS Safety Report 7348396-5 (Version None)
Quarter: 2011Q1

REPORT INFORMATION
  Report Type: 
  Country: None (occurrence: None)
  Receive Date: 20110311
  Receipt Date: 20110304
  Transmission Date: 20110831
  Serious: Yes (Disabling)
  Sender: FDA-Public Use
  Company Number: DE-MERCK-1001DEU00060

PATIENT
  Age: 59 Year
  Sex: Female
  Weight: 63 kg

DRUGS (10)
  1. TRUSOPT [Suspect]
     Route: 047
     Dates: start: 20090212, end: 20090327
  2. TRUSOPT [Suspect]
     Route: 047
     Dates: start: 20090416, end: 20090420
  3. ASPIRIN [Concomitant]
     Route: 048
     Dates: start: 20080209
  4. ENALAPRIL MALEATE [Concomitant]
     Route: 048
     Dates: start: 20090209, end: 20090401
  5. TRUSOPT [Suspect]
     Route: 047
     Dates: start: 20090212, end: 20090327
  6. TRUSOPT [Suspect]
     Indication: NORMAL TENSION GLAUCOMA
     Route: 047
     Dates: start: 20090328, end: 20090415
  7. SIMVASTATIN [Concomitant]
     Route: 048
     Dates: start: 20090209, end: 20090501
  8. TRUSOPT [Suspect]
     Route: 047
     Dates: start: 20090416, end: 20090420
  9. TRUSOPT [Suspect]
     Indication: VENOUS OCCLUSION
     Route: 047
     Dates: start: 20090328, end: 20090415
  10. OMEPRAZOLE [Concomitant]
     Route: 048
     Dates: start: 20070101

REACTIONS (7)
  - VITREOUS OPACITIES [None]
  - EYE IRRITATION [None]
  - SCOTOMA [None]
  - VITREOUS FLOATERS [None]
  - VITREOUS DETACHMENT [None]
  - EYE PAIN [None]
  - LACERATION [None]
